FAERS Safety Report 7710486-2 (Version None)
Quarter: 2011Q3

REPORT INFORMATION
  Report Type: 
  Country: None (occurrence: None)
  Receive Date: 20110825
  Receipt Date: 20101201
  Transmission Date: 20111222
  Serious: No
  Sender: FDA-Public Use
  Company Number: US-TYCO HEALTHCARE/MALLINCKRODT-T201002255

PATIENT
  Age: 63 Year
  Sex: Female

DRUGS (2)
  1. LIDOCAINE [Suspect]
     Dosage: UNK
  2. CONRAY [Suspect]
     Dosage: 15 ML, UNK
     Dates: start: 20101101, end: 20101101

REACTIONS (1)
  - WRONG DRUG ADMINISTERED [None]
